FAERS Safety Report 25718254 (Version 1)
Quarter: 2025Q3

REPORT INFORMATION
  Report Type: Report from Study
  Country: EU (occurrence: EU)
  Receive Date: 20250822
  Receipt Date: 20250822
  Transmission Date: 20251021
  Serious: Yes (Other)
  Sender: CELLTRION
  Company Number: EU-ASTRAZENECA-202411GLO008753DE

PATIENT

DRUGS (6)
  1. BEVACIZUMAB [Suspect]
     Active Substance: BEVACIZUMAB
     Indication: Ovarian cancer
     Route: 048
     Dates: start: 20240625
  2. OLAPARIB [Suspect]
     Active Substance: OLAPARIB
     Indication: Ovarian cancer
     Route: 048
     Dates: start: 20240625
  3. SIMVASTATIN [Concomitant]
     Active Substance: SIMVASTATIN
     Indication: Prophylaxis
     Route: 048
     Dates: start: 2015
  4. VENLAFAXINE HYDROCHLORIDE [Concomitant]
     Active Substance: VENLAFAXINE HYDROCHLORIDE
     Indication: Concomitant disease aggravated
     Route: 048
     Dates: start: 2011
  5. TORSEMIDE [Concomitant]
     Active Substance: TORSEMIDE
     Indication: Concomitant disease aggravated
     Route: 048
     Dates: start: 2020
  6. GABAPENTIN [Concomitant]
     Active Substance: GABAPENTIN
     Indication: Adverse event
     Route: 048
     Dates: start: 20240409

REACTIONS (2)
  - Renal failure [Not Recovered/Not Resolved]
  - Underdose [Unknown]

NARRATIVE: CASE EVENT DATE: 20240827
